FAERS Safety Report 9989307 (Version 1)
Quarter: 2014Q1

REPORT INFORMATION
  Report Type: Spontaneous
  Country: US (occurrence: None)
  Receive Date: 20140123
  Receipt Date: 20140123
  Transmission Date: 20141002
  Serious: Yes (Hospitalization)
  Sender: FDA-Public Use
  Company Number: UTC-033278

PATIENT
  Age: 54 Year
  Sex: Male
  Weight: 88 kg

DRUGS (2)
  1. REMODULIN [Suspect]
     Indication: PULMONARY ARTERIAL HYPERTENSION
     Dosage: 191.52 UG/KG (0.133 UG/KG , 1 IN 1 MIN) , INTRAVENOUS DRIP
     Route: 041
     Dates: start: 20090606
  2. REVATIO (SILDENAFIL CITRATE) (UNKNOWN [Concomitant]

REACTIONS (1)
  - Device related infection [None]
